FAERS Safety Report 12404114 (Version 1)
Quarter: 2016Q2

REPORT INFORMATION
  Report Type: Spontaneous
  Country: US (occurrence: US)
  Receive Date: 20160525
  Receipt Date: 20160525
  Transmission Date: 20160815
  Serious: No
  Sender: FDA-Public Use
  Company Number: US-SA-2015SA220858

PATIENT

DRUGS (5)
  1. OXALIPLATIN WINTHROP [Suspect]
     Active Substance: OXALIPLATIN
     Dosage: STRENGTH: 5MG/ML
     Route: 065
  2. OXALIPLATIN WINTHROP [Suspect]
     Active Substance: OXALIPLATIN
     Dosage: STRENGTH: 5MG/ML
     Route: 065
  3. OXALIPLATIN WINTHROP [Suspect]
     Active Substance: OXALIPLATIN
     Dosage: STRENGTH: 5MG/ML
     Route: 065
  4. OXALIPLATIN WINTHROP [Suspect]
     Active Substance: OXALIPLATIN
     Dosage: STRENGTH: 5MG/ML
     Route: 065
  5. OXALIPLATIN WINTHROP [Suspect]
     Active Substance: OXALIPLATIN
     Dosage: STRENGTH: 5MG/ML
     Route: 065

REACTIONS (2)
  - Drug ineffective [Unknown]
  - Thrombocytopenia [Unknown]
